FAERS Safety Report 13645646 (Version 1)
Quarter: 2017Q2

REPORT INFORMATION
  Report Type: Spontaneous
  Country: RO (occurrence: RO)
  Receive Date: 20170613
  Receipt Date: 20170613
  Transmission Date: 20170830
  Serious: Yes (Hospitalization)
  Sender: FDA-Public Use
  Company Number: RO-ABBVIE-17K-135-2004038-00

PATIENT
  Age: 62 Year
  Sex: Male

DRUGS (1)
  1. HUMIRA [Suspect]
     Active Substance: ADALIMUMAB
     Indication: PSORIASIS
     Route: 058
     Dates: start: 201701, end: 201705

REACTIONS (4)
  - Hepatic cirrhosis [Recovering/Resolving]
  - Pallor [Recovering/Resolving]
  - Oedema peripheral [Recovering/Resolving]
  - Jaundice [Recovering/Resolving]

NARRATIVE: CASE EVENT DATE: 20170514
